FAERS Safety Report 9201977 (Version 1)
Quarter: 2013Q2

REPORT INFORMATION
  Report Type: Spontaneous
  Country: GB (occurrence: GB)
  Receive Date: 20130401
  Receipt Date: 20130401
  Transmission Date: 20140414
  Serious: Yes (Life-Threatening, Hospitalization)
  Sender: FDA-Public Use
  Company Number: GB-ROCHE-1208131

PATIENT
  Age: 18 Year
  Sex: Male

DRUGS (4)
  1. ROACCUTANE [Suspect]
     Indication: ACNE
     Route: 048
     Dates: start: 201301
  2. ROACCUTANE [Suspect]
     Indication: ACNE
     Route: 048
  3. CO-CODAMOL [Suspect]
     Indication: PRODUCT USED FOR UNKNOWN INDICATION
     Route: 065
  4. PARACETAMOL [Concomitant]
     Indication: HEADACHE
     Dosage: 1/1 AS NECESSARY
     Route: 048

REACTIONS (3)
  - Depression [Recovering/Resolving]
  - Intentional overdose [Unknown]
  - Suicidal ideation [Recovering/Resolving]
